FAERS Safety Report 19486759 (Version 1)
Quarter: 2021Q3

REPORT INFORMATION
  Report Type: Spontaneous
  Country: US (occurrence: US)
  Receive Date: 20210702
  Receipt Date: 20210702
  Transmission Date: 20211014
  Serious: No
  Sender: FDA-Public Use
  Company Number: US-BIODELIVERY SCIENCES INTERNATIONAL-2020BDSI0689

PATIENT
  Sex: Female

DRUGS (1)
  1. BUPRENORPHINE. [Suspect]
     Active Substance: BUPRENORPHINE
     Indication: PAIN
     Route: 002
     Dates: start: 20201029

REACTIONS (5)
  - Therapeutic response decreased [Unknown]
  - Condition aggravated [Not Recovered/Not Resolved]
  - Product adhesion issue [Unknown]
  - Product solubility abnormal [Unknown]
  - Oral administration complication [Unknown]

NARRATIVE: CASE EVENT DATE: 2020
